FAERS Safety Report 17649784 (Version 4)
Quarter: 2024Q1

REPORT INFORMATION
  Report Type: Spontaneous
  Country: US (occurrence: US)
  Receive Date: 20200409
  Receipt Date: 20240222
  Transmission Date: 20240409
  Serious: No
  Sender: FDA-Public Use
  Company Number: US-PFIZER INC-2020144911

PATIENT
  Age: 48 Year
  Sex: Female

DRUGS (1)
  1. XELJANZ [Suspect]
     Active Substance: TOFACITINIB CITRATE
     Dosage: 10 MG, DAILY (TAKE ONE TABLET BY MOUTH DAILY)
     Route: 048

REACTIONS (3)
  - Bone pain [Unknown]
  - Malaise [Unknown]
  - Off label use [Unknown]
